FAERS Safety Report 9500013 (Version 1)
Quarter: 2013Q3

REPORT INFORMATION
  Report Type: Spontaneous
  Country: US (occurrence: US)
  Receive Date: 20130905
  Receipt Date: 20130905
  Transmission Date: 20140515
  Serious: Yes (Hospitalization, Other)
  Sender: FDA-Public Use
  Company Number: US-SANOFI-AVENTIS-2013SA087977

PATIENT
  Sex: Female

DRUGS (4)
  1. LANTUS SOLOSTAR [Suspect]
     Dosage: DOSE:30 UNIT(S)
     Route: 058
     Dates: start: 20130601
  2. HUMALOG [Suspect]
     Route: 065
     Dates: start: 20130601
  3. METFORMIN [Suspect]
     Route: 065
  4. SOLOSTAR [Concomitant]
     Dates: start: 20130601

REACTIONS (9)
  - Pancreatitis [Unknown]
  - Hyperglycaemic unconsciousness [Unknown]
  - Eye injury [Unknown]
  - Blindness unilateral [Unknown]
  - Visual acuity reduced [Unknown]
  - Aphagia [Unknown]
  - Malaise [Unknown]
  - Injection site discolouration [Unknown]
  - Blood glucose increased [Unknown]
